FAERS Safety Report 4346909-9 (Version None)
Quarter: 2004Q1

REPORT INFORMATION
  Report Type: 
  Country: None (occurrence: None)
  Receive Date: 20040329
  Receipt Date: 20040209
  Transmission Date: 20041129
  Serious: No
  Sender: FDA-Public Use
  Company Number: USA040258851

PATIENT
  Age: 5 Year
  Sex: Male
  Weight: 22 kg

DRUGS (2)
  1. STRATTERA [Suspect]
     Indication: DISTURBANCE IN ATTENTION
     Dosage: 18 MG/DAY
     Dates: start: 20030701
  2. STRATTERA [Suspect]
     Indication: RESTLESSNESS
     Dosage: 18 MG/DAY
     Dates: start: 20030701

REACTIONS (1)
  - BLOOD GALACTOSE INCREASED [None]
